FAERS Safety Report 7700667-6 (Version None)
Quarter: 2011Q3

REPORT INFORMATION
  Report Type: 
  Country: None (occurrence: None)
  Receive Date: 20110822
  Receipt Date: 20110822
  Transmission Date: 20111222
  Serious: Yes (Other)
  Sender: FDA-Public Use
  Company Number: None

PATIENT
  Age: 32 Year
  Sex: Female
  Weight: 68.038 kg

DRUGS (2)
  1. MITCONOZOLE NITRATE [Concomitant]
     Indication: FUNGAL INFECTION
     Dosage: 2 APPLICATIONS
     Route: 067
     Dates: start: 20110821, end: 20110821
  2. MICONAZOLE NITRATE [Suspect]
     Indication: FUNGAL INFECTION
     Dosage: 1 INSERT
     Route: 067
     Dates: start: 20110821, end: 20110821

REACTIONS (4)
  - PRURITUS [None]
  - ERYTHEMA [None]
  - VULVOVAGINAL PRURITUS [None]
  - VULVOVAGINAL BURNING SENSATION [None]
